FAERS Safety Report 20804151 (Version 1)
Quarter: 2022Q2

REPORT INFORMATION
  Report Type: Spontaneous
  Country: IN (occurrence: IN)
  Receive Date: 20220509
  Receipt Date: 20220509
  Transmission Date: 20220721
  Serious: Yes (Life-Threatening, Hospitalization, Other)
  Sender: FDA-Public Use
  Company Number: IN-ALLERGAN-2214684US

PATIENT
  Sex: Male

DRUGS (1)
  1. BRIMONIDINE [Suspect]
     Active Substance: BRIMONIDINE TARTRATE
     Indication: Developmental glaucoma
     Dosage: UNK

REACTIONS (4)
  - Depressed level of consciousness [Recovered/Resolved]
  - Infantile apnoea [Recovered/Resolved]
  - Hypotonia neonatal [Recovered/Resolved]
  - Off label use [Unknown]
